FAERS Safety Report 8965823 (Version 3)
Quarter: 2013Q4

REPORT INFORMATION
  Report Type: Report from Study
  Country: US (occurrence: US)
  Receive Date: 20121214
  Receipt Date: 20131227
  Transmission Date: 20140711
  Serious: Yes (Hospitalization, Other)
  Sender: FDA-Public Use
  Company Number: US-US-EMD SERONO, INC.-7180165

PATIENT
  Age: 47 Year
  Sex: Female
  Weight: 119 kg

DRUGS (12)
  1. SAIZEN [(SOMATROPIN (RDNA ORIGIN) FOR INJECTION)] [Suspect]
     Indication: HYPOPITUITARISM
     Dates: start: 20080529, end: 201211
  2. SAIZEN [(SOMATROPIN (RDNA ORIGIN) FOR INJECTION)] [Suspect]
  3. CORTEF                             /00028601/ [Concomitant]
     Indication: HYPOPITUITARISM
     Route: 048
  4. CORTEF                             /00028601/ [Concomitant]
     Route: 048
  5. FLORINEF [Concomitant]
     Indication: HYPOPITUITARISM
     Route: 048
  6. CYTOMEL [Concomitant]
     Indication: HYPOPITUITARISM
     Route: 048
  7. SYNTHROID [Concomitant]
     Indication: PRODUCT USED FOR UNKNOWN INDICATION
     Route: 048
  8. CITALOPRAM [Concomitant]
     Indication: PRODUCT USED FOR UNKNOWN INDICATION
     Route: 048
  9. ACYCLOVIR                          /00587301/ [Concomitant]
     Indication: PRODUCT USED FOR UNKNOWN INDICATION
     Route: 048
  10. ALEVE                              /00256202/ [Concomitant]
     Indication: PRODUCT USED FOR UNKNOWN INDICATION
     Route: 048
  11. VITAMIN B12                        /00056201/ [Concomitant]
     Indication: PRODUCT USED FOR UNKNOWN INDICATION
     Dosage: 1 ML BY INJECTION ROUTE
  12. OMEPRAZOLE [Concomitant]
     Indication: PRODUCT USED FOR UNKNOWN INDICATION
     Route: 048

REACTIONS (9)
  - Influenza [Recovered/Resolved]
  - Road traffic accident [Recovering/Resolving]
  - Musculoskeletal pain [Unknown]
  - Staphylococcal infection [Unknown]
  - Post-traumatic neck syndrome [Unknown]
  - Ligament sprain [Unknown]
  - Ligament sprain [Unknown]
  - Hypoaesthesia [Unknown]
  - Paraesthesia [Unknown]
